FAERS Safety Report 9916058 (Version 2)
Quarter: 2014Q2

REPORT INFORMATION
  Report Type: Spontaneous
  Country: US (occurrence: None)
  Receive Date: 20140219
  Receipt Date: 20140507
  Transmission Date: 20141212
  Serious: Yes (Hospitalization, Other)
  Sender: FDA-Public Use
  Company Number: SYM-2014-17534

PATIENT
  Age: 48 Year
  Sex: Female

DRUGS (2)
  1. XENAZINE [Suspect]
     Indication: PRODUCT USED FOR UNKNOWN INDICATION
     Dosage: 75 MG, 3 IN 1 D,
     Route: 048
     Dates: start: 201311
  2. XENAZINE [Suspect]
     Indication: DYSKINESIA
     Dosage: 75 MG, 3 IN 1 D,
     Route: 048
     Dates: start: 201311

REACTIONS (3)
  - Confusional state [None]
  - Delusion [None]
  - Paranoia [None]
